FAERS Safety Report 7006667-6 (Version None)
Quarter: 2010Q3

REPORT INFORMATION
  Report Type: 
  Country: None (occurrence: None)
  Receive Date: 20100913
  Receipt Date: 20100908
  Transmission Date: 20110219
  Serious: Yes (Hospitalization)
  Sender: FDA-Public Use
  Company Number: 2010SP048024

PATIENT
  Age: 17 Year
  Sex: Female

DRUGS (1)
  1. CERAZETTE (DESOGESTREL /00754001/) [Suspect]
     Indication: ORAL CONTRACEPTION
     Dosage: 1 DF
     Dates: start: 20091101

REACTIONS (5)
  - ANAEMIA [None]
  - BLOOD FOLATE DECREASED [None]
  - MALAISE [None]
  - MENOMETRORRHAGIA [None]
  - SERUM FERRITIN DECREASED [None]
